FAERS Safety Report 12509042 (Version 1)
Quarter: 2016Q2

REPORT INFORMATION
  Report Type: Spontaneous
  Country: JP (occurrence: JP)
  Receive Date: 20160629
  Receipt Date: 20160629
  Transmission Date: 20160815
  Serious: Yes (Other)
  Sender: FDA-Public Use
  Company Number: JP-CONCORDIA PHARMACEUTICALS INC.-CO-PL-JP-2016-262

PATIENT
  Age: 75 Year
  Sex: Female

DRUGS (8)
  1. FUROSEMIDE. [Concomitant]
     Active Substance: FUROSEMIDE
  2. TEPRENONE [Concomitant]
     Active Substance: TEPRENONE
  3. BEPRICOR [Concomitant]
     Active Substance: BEPRIDIL
  4. PLAQUENIL [Suspect]
     Active Substance: HYDROXYCHLOROQUINE SULFATE
     Indication: SYSTEMIC LUPUS ERYTHEMATOSUS
     Route: 048
     Dates: start: 20160318, end: 20160412
  5. ELIQUIS [Concomitant]
     Active Substance: APIXABAN
  6. PREDNISOLONE. [Concomitant]
     Active Substance: PREDNISOLONE
  7. DIGOSIN [Concomitant]
     Active Substance: DIGOXIN
  8. ONEALFA [Concomitant]
     Active Substance: ALFACALCIDOL

REACTIONS (1)
  - Drug eruption [Recovering/Resolving]
